FAERS Safety Report 16384248 (Version 2)
Quarter: 2019Q2

REPORT INFORMATION
  Report Type: Report from Study
  Country: BR (occurrence: BR)
  Receive Date: 20190603
  Receipt Date: 20190607
  Transmission Date: 20190711
  Serious: Yes (Death, Hospitalization, Other)
  Sender: FDA-Public Use
  Company Number: BR-JNJFOC-20190529410

PATIENT
  Age: 68 Year
  Sex: Female
  Weight: 43 kg

DRUGS (1)
  1. STELARA [Suspect]
     Active Substance: USTEKINUMAB
     Indication: CROHN^S DISEASE
     Route: 058
     Dates: start: 20181024

REACTIONS (3)
  - Death [Fatal]
  - Crohn^s disease [Recovering/Resolving]
  - Gastric cancer [Unknown]

NARRATIVE: CASE EVENT DATE: 201905
